FAERS Safety Report 21631801 (Version 2)
Quarter: 2023Q1

REPORT INFORMATION
  Report Type: Report from Study
  Country: US (occurrence: US)
  Receive Date: 20221123
  Receipt Date: 20230104
  Transmission Date: 20230417
  Serious: No
  Sender: FDA-Public Use
  Company Number: US-ABBVIE-22K-163-4226479-00

PATIENT
  Age: 19 Year
  Sex: Female

DRUGS (2)
  1. HUMIRA [Suspect]
     Active Substance: ADALIMUMAB
     Indication: Crohn^s disease
     Dosage: DAY 1
     Route: 058
     Dates: start: 20211217, end: 20211217
  2. HUMIRA [Suspect]
     Active Substance: ADALIMUMAB
     Dosage: DAY 15
     Route: 058
     Dates: start: 20211231, end: 20211231

REACTIONS (20)
  - Abdominal pain [Not Recovered/Not Resolved]
  - Constipation [Unknown]
  - Malaise [Unknown]
  - Diarrhoea [Not Recovered/Not Resolved]
  - Gastrointestinal sounds abnormal [Unknown]
  - Flatulence [Unknown]
  - Injection site pruritus [Unknown]
  - Insomnia [Unknown]
  - Abdominal distension [Not Recovered/Not Resolved]
  - Depressed mood [Unknown]
  - Haematochezia [Unknown]
  - Anxiety [Unknown]
  - Nasopharyngitis [Not Recovered/Not Resolved]
  - Asthenia [Unknown]
  - Papule [Unknown]
  - Crohn^s disease [Recovering/Resolving]
  - Therapeutic product effect incomplete [Unknown]
  - Nausea [Not Recovered/Not Resolved]
  - Impaired healing [Unknown]
  - Decreased appetite [Not Recovered/Not Resolved]

NARRATIVE: CASE EVENT DATE: 20211201
